FAERS Safety Report 10426438 (Version 1)
Quarter: 2014Q3

REPORT INFORMATION
  Report Type: Spontaneous
  Country: US (occurrence: None)
  Receive Date: 20140725
  Receipt Date: 20140725
  Transmission Date: 20150326
  Serious: No
  Sender: FDA-Public Use
  Company Number: AP356-00657-SPO-US

PATIENT
  Age: 59 Year
  Sex: Female

DRUGS (5)
  1. LEXAPRO(ESCITALOPRAM OXALATE) [Concomitant]
  2. THYROID MEDICATION(THYROID) [Concomitant]
  3. PRILOSEC(OMEPRAZOLE) [Concomitant]
  4. BELVIQ [Suspect]
     Active Substance: LORCASERIN HYDROCHLORIDE
     Indication: WEIGHT CONTROL
     Route: 048
     Dates: start: 20140409, end: 20140423
  5. STATIN(CHOLESTEROL- AND TRIGLYCERIDE REDUCERS) [Concomitant]

REACTIONS (1)
  - Drug ineffective [None]

NARRATIVE: CASE EVENT DATE: 20140423
